FAERS Safety Report 16170937 (Version 1)
Quarter: 2019Q2

REPORT INFORMATION
  Report Type: Spontaneous
  Country: FR (occurrence: FR)
  Receive Date: 20190408
  Receipt Date: 20190408
  Transmission Date: 20190711
  Serious: Yes (Hospitalization)
  Sender: FDA-Public Use
  Company Number: PHHY2019FR076431

PATIENT
  Age: 34 Year
  Sex: Female

DRUGS (5)
  1. PARACETAMOL [Suspect]
     Active Substance: ACETAMINOPHEN
     Dosage: UNK UNK, QD
     Route: 048
  2. PARACETAMOL [Suspect]
     Active Substance: ACETAMINOPHEN
     Indication: ILL-DEFINED DISORDER
     Dosage: 9.2 G, QD
     Route: 048
     Dates: end: 20061113
  3. LAMALINE (ACETAMINOPHEN\CAFFEINE\OPIUM) [Suspect]
     Active Substance: ACETAMINOPHEN\CAFFEINE\OPIUM
     Indication: ILL-DEFINED DISORDER
     Dosage: UNK UNK, QD
     Route: 054
     Dates: end: 20061113
  4. PRONTALGINE [CAFFEINE;CODEINE PHOSPHATE HEMIHYDRATE;PARACETAMOL] [Suspect]
     Active Substance: ACETAMINOPHEN\CAFFEINE\CODEINE
     Indication: ILL-DEFINED DISORDER
     Dosage: UNK UNK, QD
     Route: 048
  5. PRONTALGINE [CAFFEINE;CODEINE PHOSPHATE HEMIHYDRATE;PARACETAMOL] [Suspect]
     Active Substance: ACETAMINOPHEN\CAFFEINE\CODEINE
     Dosage: 18 DF, QD
     Route: 048
     Dates: end: 20061113

REACTIONS (3)
  - Drug withdrawal syndrome [Unknown]
  - Drug abuse [Unknown]
  - Gamma-glutamyltransferase increased [Unknown]

NARRATIVE: CASE EVENT DATE: 2006
